FAERS Safety Report 17718227 (Version 1)
Quarter: 2020Q2

REPORT INFORMATION
  Report Type: Spontaneous
  Country: US (occurrence: US)
  Receive Date: 20200428
  Receipt Date: 20200428
  Transmission Date: 20200714
  Serious: Yes (Hospitalization)
  Sender: FDA-Public Use
  Company Number: None

PATIENT
  Age: 60 Year
  Sex: Male
  Weight: 122 kg

DRUGS (1)
  1. MORPHINE (MORPHINE CONCENTRATED 20MG/ML SOLN, ORAL) [Suspect]
     Active Substance: MORPHINE SULFATE
     Indication: OVERDOSE
     Dates: end: 20200424

REACTIONS (8)
  - Suicidal ideation [None]
  - Sedation [None]
  - Intentional overdose [None]
  - Self-medication [None]
  - Suicide attempt [None]
  - Respiratory depression [None]
  - Dysarthria [None]
  - Alcohol use [None]

NARRATIVE: CASE EVENT DATE: 20200424
